FAERS Safety Report 6207041-2 (Version None)
Quarter: 2009Q2

REPORT INFORMATION
  Report Type: 
  Country: None (occurrence: None)
  Receive Date: 20090528
  Receipt Date: 20090519
  Transmission Date: 20091009
  Serious: Yes (Other)
  Sender: FDA-Public Use
  Company Number: JP-BAYER-200911638BYL

PATIENT
  Age: 59 Year
  Sex: Male
  Weight: 63 kg

DRUGS (18)
  1. FLUDARA [Suspect]
     Indication: ACUTE MYELOID LEUKAEMIA
     Dosage: AS USED: 25 MG/M2  UNIT DOSE: 50 MG
     Route: 042
     Dates: start: 20090101, end: 20090103
  2. FLUDARA [Suspect]
     Dosage: AS USED: 25 MG/M2  UNIT DOSE: 50 MG
     Route: 042
     Dates: start: 20090105, end: 20090105
  3. ALKERAN [Concomitant]
     Indication: ACUTE MYELOID LEUKAEMIA
     Dosage: AS USED: 40 MG/M2  UNIT DOSE: 50 MG
     Route: 042
     Dates: start: 20090102, end: 20090102
  4. ALKERAN [Concomitant]
     Dosage: AS USED: 40 MG/M2  UNIT DOSE: 50 MG
     Route: 042
     Dates: start: 20090105, end: 20090106
  5. CELLCEPT [Concomitant]
     Dosage: TOTAL DAILY DOSE: 2250 MG  UNIT DOSE: 250 MG
     Route: 048
     Dates: start: 20090105, end: 20090110
  6. CELLCEPT [Concomitant]
     Dosage: TOTAL DAILY DOSE: 1250 MG  UNIT DOSE: 250 MG
     Route: 048
     Dates: start: 20090128, end: 20090128
  7. CELLCEPT [Concomitant]
     Dosage: TOTAL DAILY DOSE: 500 MG  UNIT DOSE: 250 MG
     Route: 048
     Dates: start: 20090130, end: 20090205
  8. CELLCEPT [Concomitant]
     Dosage: TOTAL DAILY DOSE: 2250 MG  UNIT DOSE: 250 MG
     Route: 048
     Dates: start: 20090116, end: 20090117
  9. CELLCEPT [Concomitant]
     Dosage: TOTAL DAILY DOSE: 2250 MG  UNIT DOSE: 250 MG
     Route: 048
     Dates: start: 20090129, end: 20090129
  10. CELLCEPT [Concomitant]
     Dosage: TOTAL DAILY DOSE: 2250 MG  UNIT DOSE: 250 MG
     Route: 048
     Dates: start: 20090123, end: 20090126
  11. CELLCEPT [Concomitant]
     Dosage: TOTAL DAILY DOSE: 4500 MG  UNIT DOSE: 250 MG
     Route: 048
     Dates: start: 20090118, end: 20090122
  12. CELLCEPT [Concomitant]
     Dosage: TOTAL DAILY DOSE: 4500 MG  UNIT DOSE: 250 MG
     Route: 048
     Dates: start: 20090127, end: 20090127
  13. CELLCEPT [Concomitant]
     Dosage: TOTAL DAILY DOSE: 2250 MG  UNIT DOSE: 250 MG
     Route: 048
     Dates: start: 20090115, end: 20090115
  14. PROGRAF [Concomitant]
     Route: 041
     Dates: start: 20090107, end: 20090203
  15. PROGRAF [Concomitant]
     Dosage: TOTAL DAILY DOSE: 1.0 MG
     Route: 048
     Dates: start: 20090218, end: 20090222
  16. PROGRAF [Concomitant]
     Dosage: TOTAL DAILY DOSE: 1.2 MG
     Route: 048
     Dates: start: 20090216, end: 20090217
  17. CONCENTRATED RED CELLS [Concomitant]
     Indication: PACKED RED BLOOD CELL TRANSFUSION
     Route: 042
     Dates: start: 20081209, end: 20090212
  18. PLATELETS [Concomitant]
     Indication: PLATELET TRANSFUSION
     Route: 042
     Dates: start: 20081228, end: 20090212

REACTIONS (2)
  - ACUTE GRAFT VERSUS HOST DISEASE IN INTESTINE [None]
  - ACUTE GRAFT VERSUS HOST DISEASE IN SKIN [None]
